FAERS Safety Report 4563508-4 (Version None)
Quarter: 2005Q1

REPORT INFORMATION
  Report Type: 
  Country: None (occurrence: None)
  Receive Date: 20050128
  Receipt Date: 20040726
  Transmission Date: 20050727
  Serious: No
  Sender: FDA-Public Use
  Company Number: US-GLAXOSMITHKLINE-A0519712A

PATIENT
  Age: 26 Year
  Sex: Male
  Weight: 220.4 kg

DRUGS (6)
  1. WELLBUTRIN SR [Suspect]
     Indication: DEPRESSION
     Route: 048
     Dates: start: 20040504
  2. WELLBUTRIN [Suspect]
     Indication: DEPRESSION
     Dosage: 75MG PER DAY
     Route: 048
     Dates: start: 20040504, end: 20040525
  3. EFFEXOR XR [Concomitant]
     Dosage: 112.5MG PER DAY
     Route: 048
     Dates: start: 20040502
  4. TRAZODONE HCL [Concomitant]
     Route: 048
     Dates: start: 20040502
  5. DIAZEPAM [Concomitant]
     Dosage: 5MG AS REQUIRED
     Route: 048
     Dates: start: 20040428, end: 20040601
  6. DIAZEPAM [Concomitant]
     Dosage: 5MG AS REQUIRED
     Route: 048
     Dates: start: 20040601

REACTIONS (5)
  - CRYING [None]
  - DEPRESSION [None]
  - DIARRHOEA [None]
  - MOOD SWINGS [None]
  - STOOL ANALYSIS ABNORMAL [None]
